FAERS Safety Report 7417613-5 (Version None)
Quarter: 2011Q2

REPORT INFORMATION
  Report Type: 
  Country: None (occurrence: None)
  Receive Date: 20110415
  Receipt Date: 20110411
  Transmission Date: 20111010
  Serious: Yes (Other)
  Sender: FDA-Public Use
  Company Number: US-GENZYME-FLUD-1001073

PATIENT
  Age: 48 Year

DRUGS (9)
  1. THYMOGLOBULIN [Suspect]
     Indication: MYELODYSPLASTIC SYNDROME
     Dosage: UNK
     Route: 065
  2. BUSULFAN [Suspect]
     Indication: MYELODYSPLASTIC SYNDROME
     Dosage: 130 MG/M2, QDX2
     Route: 042
  3. BUSULFAN [Suspect]
     Indication: STEM CELL TRANSPLANT
  4. METHOTREXATE [Suspect]
     Indication: PROPHYLAXIS AGAINST GRAFT VERSUS HOST DISEASE
     Dosage: UNK
     Route: 065
  5. FLUDARA [Suspect]
     Indication: STEM CELL TRANSPLANT
  6. FLUDARA [Suspect]
     Indication: MYELODYSPLASTIC SYNDROME
     Dosage: 140 MG/M2, QDX4
     Route: 065
  7. DECITABINE [Suspect]
     Dosage: 10 MG/M2, QDX10
     Route: 042
  8. DECITABINE [Suspect]
     Indication: MYELODYSPLASTIC SYNDROME
     Dosage: 10 MG/M2, QDX10
     Route: 042
  9. TACROLIMUS [Suspect]
     Indication: PROPHYLAXIS AGAINST GRAFT VERSUS HOST DISEASE
     Dosage: UNK
     Route: 065

REACTIONS (4)
  - MUCOSAL INFLAMMATION [None]
  - VOMITING [None]
  - NAUSEA [None]
  - CHRONIC GRAFT VERSUS HOST DISEASE [None]
